FAERS Safety Report 10218254 (Version 1)
Quarter: 2014Q2

REPORT INFORMATION
  Report Type: Spontaneous
  Country: CN (occurrence: CN)
  Receive Date: 20140605
  Receipt Date: 20140605
  Transmission Date: 20141212
  Serious: Yes (Other)
  Sender: FDA-Public Use
  Company Number: CN-ROCHE-1408536

PATIENT
  Age: 44 Year
  Sex: Female
  Weight: 45 kg

DRUGS (3)
  1. ROCEPHIN [Suspect]
     Indication: INFECTION
     Route: 041
     Dates: start: 20130507, end: 20130509
  2. ROCEPHIN [Suspect]
     Route: 041
     Dates: start: 20130510, end: 20130511
  3. CEFIN (CHINA) [Suspect]
     Indication: INFECTION
     Route: 041
     Dates: start: 20130420, end: 20130507

REACTIONS (4)
  - Superinfection [Recovered/Resolved]
  - Hyperpyrexia [None]
  - Enterococcus test positive [None]
  - Staphylococcus test positive [None]
